FAERS Safety Report 6603547-2 (Version None)
Quarter: 2010Q1

REPORT INFORMATION
  Report Type: 
  Country: None (occurrence: None)
  Receive Date: 20100226
  Receipt Date: 20090923
  Transmission Date: 20100710
  Serious: No
  Sender: FDA-Public Use
  Company Number: A0808690A

PATIENT
  Age: 33 Year
  Sex: Female

DRUGS (5)
  1. VALTREX [Suspect]
     Dosage: 2G TWICE PER DAY
     Route: 048
     Dates: start: 20090301
  2. NEXIUM [Concomitant]
  3. SINGULAIR [Concomitant]
  4. VENTOLIN [Concomitant]
  5. VITAMIN B-12 [Concomitant]

REACTIONS (16)
  - ALOPECIA [None]
  - BLOOD PRESSURE INCREASED [None]
  - CONTUSION [None]
  - DRUG ADMINISTRATION ERROR [None]
  - DYSPHAGIA [None]
  - GASTRIC DISORDER [None]
  - HEADACHE [None]
  - HEART RATE INCREASED [None]
  - KETONURIA [None]
  - LIP PAIN [None]
  - LIP SWELLING [None]
  - NAUSEA [None]
  - OROPHARYNGEAL PAIN [None]
  - PRURITUS [None]
  - TREMOR [None]
  - URINARY TRACT INFECTION [None]
